FAERS Safety Report 6382207-X (Version None)
Quarter: 2009Q3

REPORT INFORMATION
  Report Type: 
  Country: None (occurrence: None)
  Receive Date: 20090928
  Receipt Date: 20090928
  Transmission Date: 20100115
  Serious: Yes (Other)
  Sender: FDA-Public Use
  Company Number: None

PATIENT
  Sex: Female
  Weight: 48.0813 kg

DRUGS (2)
  1. CIPROFLOXACIN HCL 500MG MG TAA PO MFG: APOTEX USA, INC. [Suspect]
     Indication: INJURY
     Dosage: 500 MG TAA PO 1 TABLET 12 HRS 7 DAYS 8/16/09 9:10AM DISCONTINUED
     Route: 048
     Dates: start: 20090814, end: 20090815
  2. CIPROFLOXACIN HCL 500MG MG TAA PO MFG: APOTEX USA, INC. [Suspect]
     Indication: INJURY
     Dosage: 500 MG TAA PO 1 TABLET 12 HRS 7 DAYS 8/16/09 9:10AM DISCONTINUED
     Route: 048
     Dates: start: 20090816

REACTIONS (1)
  - NO ADVERSE EVENT [None]
